FAERS Safety Report 6638104-5 (Version None)
Quarter: 2010Q1

REPORT INFORMATION
  Report Type: 
  Country: None (occurrence: None)
  Receive Date: 20100317
  Receipt Date: 20100310
  Transmission Date: 20100710
  Serious: Yes (Death)
  Sender: FDA-Public Use
  Company Number: US-GILEAD-2010-0027568

PATIENT
  Sex: Male
  Weight: 97.61 kg

DRUGS (3)
  1. LETAIRIS [Suspect]
     Indication: PULMONARY ARTERIAL HYPERTENSION
     Route: 048
     Dates: start: 20100212
  2. CEPHALEXIN [Concomitant]
  3. SLOW-MAG [Concomitant]

REACTIONS (1)
  - DEATH [None]
